FAERS Safety Report 7324581-3 (Version None)
Quarter: 2011Q1

REPORT INFORMATION
  Report Type: 
  Country: None (occurrence: None)
  Receive Date: 20110301
  Receipt Date: 20110224
  Transmission Date: 20110831
  Serious: Yes (Other)
  Sender: FDA-Public Use
  Company Number: FR-PFIZER INC-2010178102

PATIENT
  Age: 64 Year
  Sex: Female

DRUGS (1)
  1. ZOLOFT [Suspect]
     Dosage: 50 MG, 1X/DAY

REACTIONS (5)
  - TENSION [None]
  - HYPERHIDROSIS [None]
  - PALPITATIONS [None]
  - SOMNOLENCE [None]
  - BLOOD POTASSIUM INCREASED [None]
